FAERS Safety Report 15602450 (Version 1)
Quarter: 2018Q4

REPORT INFORMATION
  Report Type: Spontaneous
  Country: US (occurrence: US)
  Receive Date: 20181109
  Receipt Date: 20181109
  Transmission Date: 20190205
  Serious: No
  Sender: FDA-Public Use
  Company Number: US-UPSHER-SMITH LABORATORIES, LLC-2018USL00323

PATIENT
  Age: 54 Year
  Sex: Male
  Weight: 96.15 kg

DRUGS (17)
  1. MORPHINE [Concomitant]
     Active Substance: MORPHINE
     Dosage: UNK, AS NEEDED
  2. XANAX [Concomitant]
     Active Substance: ALPRAZOLAM
  3. PLAVIX [Concomitant]
     Active Substance: CLOPIDOGREL BISULFATE
  4. ULTRAM [Concomitant]
     Active Substance: TRAMADOL HYDROCHLORIDE
  5. NITRO [Concomitant]
     Active Substance: NITROGLYCERIN
  6. JANTOVEN [Suspect]
     Active Substance: WARFARIN SODIUM
     Dosage: 7.5 MG, 5X/WEEK
     Route: 048
     Dates: start: 20180711
  7. PERCOCET [Concomitant]
     Active Substance: ACETAMINOPHEN\OXYCODONE HYDROCHLORIDE
     Dosage: UNK, AS NEEDED
  8. JANTOVEN [Suspect]
     Active Substance: WARFARIN SODIUM
     Indication: THROMBOSIS PROPHYLAXIS
     Dosage: 10 MG, 2X/WEEK
     Route: 048
     Dates: start: 20180711, end: 201807
  9. LOVENOX [Concomitant]
     Active Substance: ENOXAPARIN SODIUM
  10. KLONOPIN [Concomitant]
     Active Substance: CLONAZEPAM
  11. BENADRYL [Concomitant]
     Active Substance: DIPHENHYDRAMINE HYDROCHLORIDE
     Dosage: 2 DOSAGE UNITS, 1X/DAY
  12. FLAGYL [Concomitant]
     Active Substance: METRONIDAZOLE\METRONIDAZOLE HYDROCHLORIDE
  13. REGLAN [Concomitant]
     Active Substance: METOCLOPRAMIDE HYDROCHLORIDE
  14. CARDIZEM [Concomitant]
     Active Substance: DILTIAZEM HYDROCHLORIDE
  15. UNKNOWN PROTON PUMP INHIBITOR [Concomitant]
  16. AMBIEN [Concomitant]
     Active Substance: ZOLPIDEM TARTRATE
  17. RESTORIL [Concomitant]
     Active Substance: TEMAZEPAM

REACTIONS (2)
  - Bowel movement irregularity [Recovered/Resolved]
  - Gastrointestinal hypomotility [Unknown]

NARRATIVE: CASE EVENT DATE: 201807
